FAERS Safety Report 16877778 (Version 2)
Quarter: 2019Q4

REPORT INFORMATION
  Report Type: Spontaneous
  Country: US (occurrence: US)
  Receive Date: 20191002
  Receipt Date: 20191008
  Transmission Date: 20200122
  Serious: Yes (Hospitalization)
  Sender: FDA-Public Use
  Company Number: US-INDIVIOR EUROPE LIMITED-INDV-118116-2019

PATIENT
  Age: 72 Year
  Sex: Female

DRUGS (2)
  1. SUBOXONE [Suspect]
     Active Substance: BUPRENORPHINE HYDROCHLORIDE\NALOXONE HYDROCHLORIDE
     Indication: DRUG DEPENDENCE
     Dosage: CUTTING FILMS DOWN UNTIL SHE GETS EIGHT PIECES
     Route: 060
  2. SUBOXONE [Suspect]
     Active Substance: BUPRENORPHINE HYDROCHLORIDE\NALOXONE HYDROCHLORIDE
     Indication: PAIN
     Dosage: UNK, (WEANING OFF)
     Route: 060
     Dates: end: 2019

REACTIONS (8)
  - Spinal stenosis [Unknown]
  - Wrong technique in product usage process [Recovered/Resolved]
  - Feeling abnormal [Not Recovered/Not Resolved]
  - Intentional underdose [Recovered/Resolved]
  - Rectal prolapse [Unknown]
  - Aphthous ulcer [Not Recovered/Not Resolved]
  - Oral pain [Not Recovered/Not Resolved]
  - Swollen tongue [Not Recovered/Not Resolved]

NARRATIVE: CASE EVENT DATE: 20190303
